FAERS Safety Report 18314750 (Version 1)
Quarter: 2020Q3

REPORT INFORMATION
  Report Type: Spontaneous
  Country: US (occurrence: US)
  Receive Date: 20200925
  Receipt Date: 20200925
  Transmission Date: 20201103
  Serious: No
  Sender: FDA-Public Use
  Company Number: US-009507513-2009USA006119

PATIENT
  Age: 58 Year
  Sex: Female

DRUGS (2)
  1. KEYTRUDA [Suspect]
     Active Substance: PEMBROLIZUMAB
     Indication: BRAIN CANCER METASTATIC
     Dosage: EVERY 21 DAYS
     Route: 042
     Dates: start: 20200826
  2. COMPAZINE [Concomitant]
     Active Substance: PROCHLORPERAZINE MALEATE

REACTIONS (3)
  - Muscular weakness [Not Recovered/Not Resolved]
  - Product use in unapproved indication [Unknown]
  - Micturition urgency [Not Recovered/Not Resolved]

NARRATIVE: CASE EVENT DATE: 20200901
